FAERS Safety Report 6773124-1 (Version None)
Quarter: 2010Q2

REPORT INFORMATION
  Report Type: 
  Country: None (occurrence: None)
  Receive Date: 20100616
  Receipt Date: 20100603
  Transmission Date: 20101027
  Serious: Yes (Hospitalization)
  Sender: FDA-Public Use
  Company Number: US-ELI_LILLY_AND_COMPANY-US201006002957

PATIENT
  Sex: Female
  Weight: 43.991 kg

DRUGS (7)
  1. FORTEO [Suspect]
     Indication: OSTEOPOROSIS
     Dosage: 20 UG, DAILY (1/D)
     Dates: end: 20100421
  2. LISINOPRIL [Concomitant]
  3. METOPROLOL [Concomitant]
  4. IRON [Concomitant]
  5. COUMADIN [Concomitant]
  6. ASPIRIN [Concomitant]
  7. CALCIUM CARBONATE [Concomitant]

REACTIONS (12)
  - ATRIAL FIBRILLATION [None]
  - CONFUSIONAL STATE [None]
  - DYSARTHRIA [None]
  - GAIT DISTURBANCE [None]
  - HYPERCALCAEMIA [None]
  - HYPOKALAEMIA [None]
  - HYPOMAGNESAEMIA [None]
  - HYPOVITAMINOSIS [None]
  - MALAISE [None]
  - NAUSEA [None]
  - UNRESPONSIVE TO STIMULI [None]
  - WEIGHT DECREASED [None]
